FAERS Safety Report 4962079-8 (Version None)
Quarter: 2006Q2

REPORT INFORMATION
  Report Type: 
  Country: None (occurrence: None)
  Receive Date: 20060404
  Receipt Date: 20060301
  Transmission Date: 20061013
  Serious: Yes (Life-Threatening, Hospitalization, Other)
  Sender: FDA-Public Use
  Company Number: US-MERCK-0603USA00404

PATIENT
  Age: 73 Year
  Sex: Male
  Weight: 103 kg

DRUGS (16)
  1. ZOCOR [Suspect]
     Indication: ARTERIOSCLEROSIS CORONARY ARTERY
     Route: 048
     Dates: start: 20010201, end: 20060217
  2. ZOCOR [Suspect]
     Route: 048
     Dates: start: 20010201, end: 20060217
  3. CIPRO [Concomitant]
     Route: 065
     Dates: start: 20060131, end: 20060201
  4. LEVAQUIN [Concomitant]
     Route: 065
     Dates: start: 20060201
  5. NIASPAN [Suspect]
     Route: 065
  6. DIOVAN [Concomitant]
     Route: 065
  7. QUININE SULFATE [Concomitant]
     Route: 065
  8. ETHAMBUTOL HYDROCHLORIDE [Concomitant]
     Route: 065
  9. BIAXIN [Concomitant]
     Route: 065
  10. PLAVIX [Concomitant]
     Route: 065
  11. SINGULAIR [Concomitant]
     Route: 065
  12. SPIRIVA [Concomitant]
     Route: 065
  13. ADVAIR DISKUS 100/50 [Concomitant]
     Route: 055
  14. XALATAN [Concomitant]
     Route: 047
  15. ECONOPRED PLUS [Concomitant]
     Route: 047
  16. ACULAR [Concomitant]
     Route: 065

REACTIONS (17)
  - ADENOIDECTOMY [None]
  - AORTIC ANEURYSM [None]
  - AORTIC VALVE CALCIFICATION [None]
  - CATARACT [None]
  - CHOLELITHIASIS [None]
  - DILATATION ATRIAL [None]
  - DIVERTICULUM [None]
  - HAEMATOCRIT DECREASED [None]
  - HAEMOGLOBIN DECREASED [None]
  - HYDRONEPHROSIS [None]
  - HYPERTENSION [None]
  - PLEURAL EFFUSION [None]
  - RENAL FAILURE [None]
  - RHABDOMYOLYSIS [None]
  - SUPRAVENTRICULAR EXTRASYSTOLES [None]
  - TONSILLECTOMY [None]
  - URINARY TRACT INFECTION ENTEROCOCCAL [None]
